FAERS Safety Report 6085895-0 (Version None)
Quarter: 2009Q1

REPORT INFORMATION
  Report Type: 
  Country: None (occurrence: None)
  Receive Date: 20090220
  Receipt Date: 20090217
  Transmission Date: 20090719
  Serious: Yes (Hospitalization)
  Sender: FDA-Public Use
  Company Number: IT-SANOFI-SYNTHELABO-A06200900076

PATIENT
  Age: 76 Year
  Sex: Male

DRUGS (7)
  1. AZATIOPRINA [Concomitant]
     Indication: DRUG USE FOR UNKNOWN INDICATION
     Dosage: UNK
     Route: 048
     Dates: end: 20081201
  2. CARDIRENE [Concomitant]
     Indication: DRUG USE FOR UNKNOWN INDICATION
     Dosage: UNK
     Route: 048
     Dates: end: 20081201
  3. ORUDIS [Concomitant]
     Indication: DRUG USE FOR UNKNOWN INDICATION
     Dosage: UNK
     Route: 065
     Dates: end: 20081201
  4. PLAQUENIL [Suspect]
     Indication: RHEUMATOID ARTHRITIS
     Dosage: UNK
     Route: 048
     Dates: end: 20081104
  5. PLAQUENIL [Suspect]
     Dosage: 200 MG THREE TIMES A WEEK
     Route: 048
     Dates: end: 20081201
  6. SEQUACOR [Concomitant]
     Indication: DRUG USE FOR UNKNOWN INDICATION
     Dosage: UNK
     Route: 048
     Dates: end: 20081201
  7. DELTACORTENE [Concomitant]
     Indication: DRUG USE FOR UNKNOWN INDICATION
     Dosage: UNK
     Route: 048
     Dates: end: 20081201

REACTIONS (3)
  - ABDOMINAL PAIN [None]
  - ANAEMIA [None]
  - GASTROINTESTINAL HAEMORRHAGE [None]
